FAERS Safety Report 7704612-9 (Version None)
Quarter: 2011Q3

REPORT INFORMATION
  Report Type: 
  Country: None (occurrence: None)
  Receive Date: 20110823
  Receipt Date: 20110818
  Transmission Date: 20111222
  Serious: Yes (Life-Threatening, Other)
  Sender: FDA-Public Use
  Company Number: US-GLAXOSMITHKLINE-A0938821A

PATIENT
  Age: 66 Year
  Sex: Male

DRUGS (6)
  1. CYANOCOBALAMIN [Concomitant]
     Dates: start: 20110427
  2. PROMACTA [Suspect]
     Indication: AUTOIMMUNE THROMBOCYTOPENIA
     Dosage: 50MG PER DAY
     Route: 048
     Dates: start: 20110630, end: 20110717
  3. RAMIPRIL [Concomitant]
     Dosage: 2.5MG PER DAY
     Dates: start: 20090916
  4. METOPROLOL SUCCINATE [Concomitant]
     Dosage: 50MG PER DAY
     Dates: start: 20090916
  5. HYDROCODONE BITARTRATE [Concomitant]
     Dates: start: 20101103
  6. PRAVACHOL [Concomitant]
     Dates: start: 20100907

REACTIONS (7)
  - MYOCARDIAL INFARCTION [None]
  - ANGINA PECTORIS [None]
  - CEREBROVASCULAR ACCIDENT [None]
  - CHEST DISCOMFORT [None]
  - HEADACHE [None]
  - PAIN IN EXTREMITY [None]
  - PETECHIAE [None]
